FAERS Safety Report 5517188-1 (Version None)
Quarter: 2007Q4

REPORT INFORMATION
  Report Type: 
  Country: None (occurrence: None)
  Receive Date: 20071114
  Receipt Date: 20070823
  Transmission Date: 20080405
  Serious: No
  Sender: FDA-Public Use
  Company Number: A0674093A

PATIENT
  Age: 62 Year

DRUGS (3)
  1. COMMIT [Suspect]
  2. CHEMOTHERAPY [Concomitant]
  3. RADIATION THERAPY [Concomitant]

REACTIONS (3)
  - DIZZINESS [None]
  - INTENTIONAL DRUG MISUSE [None]
  - SENSATION OF HEAVINESS [None]
